FAERS Safety Report 21761314 (Version 1)
Quarter: 2022Q4

REPORT INFORMATION
  Report Type: Spontaneous
  Country: TW (occurrence: TW)
  Receive Date: 20221221
  Receipt Date: 20221221
  Transmission Date: 20230113
  Serious: No
  Sender: FDA-Public Use
  Company Number: TW-PFIZER INC-202201373411

PATIENT
  Age: 66 Year
  Sex: Female

DRUGS (1)
  1. PAXLOVID [Suspect]
     Active Substance: NIRMATRELVIR\RITONAVIR
     Indication: COVID-19 treatment
     Dosage: 1 PINK (NIRMATRELVIR) AND 2 WHITE (RITONAVIR) IN THE MORNING
     Route: 048
     Dates: start: 20221214

REACTIONS (1)
  - Incorrect dose administered [Unknown]
